FAERS Safety Report 19530953 (Version 1)
Quarter: 2021Q3

REPORT INFORMATION
  Report Type: Spontaneous
  Country: FR (occurrence: FR)
  Receive Date: 20210713
  Receipt Date: 20210713
  Transmission Date: 20211014
  Serious: Yes (Other)
  Sender: FDA-Public Use
  Company Number: FR-CELGENEUS-FRA-20210700833

PATIENT
  Age: 59 Year
  Sex: Male

DRUGS (8)
  1. DEXAMETHASONE. [Suspect]
     Active Substance: DEXAMETHASONE
     Indication: CHEMOTHERAPY
     Dosage: DAY 1, DAY 2, DAY 4; DAY 5; DAY 8; DAY 9; DAY 11; DAY 12
     Route: 059
     Dates: start: 20201201, end: 20201213
  2. ORACILLINE [Suspect]
     Active Substance: PENICILLIN V
     Indication: INFECTION PROPHYLAXIS
     Route: 048
     Dates: start: 202012, end: 202012
  3. BACTRIM [Suspect]
     Active Substance: SULFAMETHOXAZOLE\TRIMETHOPRIM
     Indication: INFECTION PROPHYLAXIS
     Route: 048
     Dates: start: 202012, end: 202012
  4. REVLIMID [Suspect]
     Active Substance: LENALIDOMIDE
     Indication: CHEMOTHERAPY
     Dosage: 25 MILLIGRAM
     Route: 048
     Dates: start: 20201201, end: 20201215
  5. VELCADE [Suspect]
     Active Substance: BORTEZOMIB
     Indication: CHEMOTHERAPY
     Dosage: 3.5 MILLIGRAM
     Route: 059
     Dates: start: 202012
  6. ZELITREX [Suspect]
     Active Substance: VALACYCLOVIR HYDROCHLORIDE
     Indication: INFECTION PROPHYLAXIS
     Route: 048
     Dates: start: 202012, end: 202012
  7. LOVENOX [Suspect]
     Active Substance: ENOXAPARIN SODIUM
     Indication: INFECTION PROPHYLAXIS
     Dosage: 4000 UI 0,4 ML, SOLUTION INJECTABLE EN AMPOULE
     Route: 059
     Dates: start: 202012
  8. LEDERFOLINE [Suspect]
     Active Substance: LEUCOVORIN CALCIUM
     Indication: INFECTION PROPHYLAXIS
     Route: 048
     Dates: start: 202012, end: 202012

REACTIONS (3)
  - Acute generalised exanthematous pustulosis [Recovered/Resolved]
  - Asthenia [Recovered/Resolved]
  - Decreased appetite [Recovered/Resolved]

NARRATIVE: CASE EVENT DATE: 20201208
